FAERS Safety Report 17278542 (Version 1)
Quarter: 2020Q1

REPORT INFORMATION
  Report Type: Spontaneous
  Country: US (occurrence: US)
  Receive Date: 20200116
  Receipt Date: 20200116
  Transmission Date: 20200409
  Serious: Yes (Other)
  Sender: FDA-Public Use
  Company Number: NVSC2020US009283

PATIENT
  Age: 54 Year
  Sex: Female

DRUGS (1)
  1. GLEEVEC [Suspect]
     Active Substance: IMATINIB MESYLATE
     Indication: ACUTE MYELOID LEUKAEMIA REFRACTORY
     Dosage: 800 MG, QD
     Route: 065

REACTIONS (2)
  - Acute myeloid leukaemia refractory [Unknown]
  - Product use in unapproved indication [Unknown]
